FAERS Safety Report 8257562-6 (Version None)
Quarter: 2012Q2

REPORT INFORMATION
  Report Type: 
  Country: None (occurrence: None)
  Receive Date: 20120403
  Receipt Date: 20120326
  Transmission Date: 20120825
  Serious: Yes (Death, Hospitalization)
  Sender: FDA-Public Use
  Company Number: US-MILLENNIUM PHARMACEUTICALS, INC.-2011-04991

PATIENT
  Sex: Female

DRUGS (3)
  1. DEXAMETHASONE SODIUM PHOSPHATE [Suspect]
     Indication: MULTIPLE MYELOMA
     Dosage: 20 MG, CYCLIC
     Route: 042
     Dates: start: 20110404, end: 20110713
  2. DOXIL [Suspect]
     Indication: MULTIPLE MYELOMA
     Dosage: UNK
     Dates: start: 20110421
  3. VELCADE [Suspect]
     Indication: MULTIPLE MYELOMA
     Dosage: 1.6 MG/M2, CYCLIC
     Route: 042
     Dates: start: 20110412, end: 20110713

REACTIONS (4)
  - THROMBOSIS PROPHYLAXIS [None]
  - PERIODONTAL INFECTION [None]
  - MUCOSAL INFLAMMATION [None]
  - RENAL FAILURE CHRONIC [None]
